FAERS Safety Report 24086538 (Version 4)
Quarter: 2024Q3

REPORT INFORMATION
  Report Type: Report from Study
  Country: IT (occurrence: IT)
  Receive Date: 20240713
  Receipt Date: 20240923
  Transmission Date: 20241016
  Serious: Yes (Hospitalization, Other)
  Sender: TEVA
  Company Number: None

PATIENT
  Age: 9 Year
  Sex: Female
  Weight: 29 kg

DRUGS (8)
  1. VINCRISTINE [Suspect]
     Active Substance: VINCRISTINE
     Indication: Hodgkin^s disease
     Dosage: 1.59 MG/DAY INFUSION OVER 2 MIN. SLOW BOLUS ON 04/24 AND 05/01/2024, 1.50 MG/DAY INFUSION OVER 2 ...
     Route: 042
     Dates: start: 20240424, end: 20240603
  2. DOXORUBICIN HYDROCHLORIDE [Suspect]
     Active Substance: DOXORUBICIN HYDROCHLORIDE
     Indication: Hodgkin^s disease
     Dosage: 40.00 MG INFUSION IN 100 ML NACL 0.9% OVER 60 MIN
     Route: 042
     Dates: start: 20240520, end: 20240520
  3. DOXORUBICIN HYDROCHLORIDE [Suspect]
     Active Substance: DOXORUBICIN HYDROCHLORIDE
     Indication: Hodgkin^s disease
     Dosage: 12.46 MG INTRAVENOUS INFUSION OVER 60 MIN; DOXORUBICINA ACCORD HEALTHCARE ITALY
     Route: 042
     Dates: start: 20240424, end: 20240424
  4. DOXORUBICIN HYDROCHLORIDE [Suspect]
     Active Substance: DOXORUBICIN HYDROCHLORIDE
     Indication: Hodgkin^s disease
     Dosage: 29.82 MG INFUSION OVER 60 MIN.
     Route: 042
     Dates: start: 20240424, end: 20240424
  5. DOXORUBICIN HYDROCHLORIDE [Suspect]
     Active Substance: DOXORUBICIN HYDROCHLORIDE
     Indication: Hodgkin^s disease
     Dosage: 40.00 MG INFUSION IN 100 ML NACL 0.9% OVER 60 MIN.
     Route: 042
     Dates: start: 20240603, end: 20240603
  6. PREDNISONE [Concomitant]
     Active Substance: PREDNISONE
     Indication: Hodgkin^s disease
     Dosage: 20 MG X 3 TIMES/DAY FROM DAY 02 TO DAY 09/05/2024, 20 MG X 3 TIMES/DAY FROM DAY 20/05 TO DAY 03/0...
     Route: 048
     Dates: start: 20240502, end: 20240603
  7. ETOPOSIDE [Suspect]
     Active Substance: ETOPOSIDE
     Indication: Hodgkin^s disease
     Dosage: 132.13 MG INFUSION IN 500 ML NACL 0.9% OVER 120 MIN. FROM DAY 24/04 TO DAY 28/04/2024, 130.00 MG ...
     Route: 042
     Dates: start: 20240424, end: 20240524
  8. LANSOPRAZOLE [Concomitant]
     Active Substance: LANSOPRAZOLE
     Indication: Prophylaxis against gastrointestinal ulcer
     Dosage: 15 MG/DAY FROM DAY 02 TO DAY 09/05/2024, 15 MG/DAY FROM DAY 20 TO DAY 03/06/2024
     Route: 048
     Dates: start: 20240502, end: 20240603

REACTIONS (4)
  - Abdominal pain [Recovered/Resolved]
  - Alopecia [Not Recovered/Not Resolved]
  - Neutropenia [Recovered/Resolved]
  - Leukopenia [Recovered/Resolved]

NARRATIVE: CASE EVENT DATE: 20240503
